FAERS Safety Report 9078416 (Version 1)
Quarter: 2013Q1

REPORT INFORMATION
  Report Type: Report from Study
  Country: US (occurrence: US)
  Receive Date: 20130130
  Receipt Date: 20130130
  Transmission Date: 20140127
  Serious: No
  Sender: FDA-Public Use
  Company Number: US-ABBOTT-12P-163-0958930-00

PATIENT
  Age: 65 None
  Sex: Female
  Weight: 94.89 kg

DRUGS (4)
  1. HUMIRA 40 MG/0.8 ML PEN [Suspect]
     Dates: start: 201203
  2. PENTASA [Concomitant]
     Indication: CROHN^S DISEASE
  3. ATENOLOL [Concomitant]
     Indication: BLOOD PRESSURE
  4. HUMIRA 40 MG/0.8 ML PEN [Suspect]
     Indication: CROHN^S DISEASE
     Dates: start: 201107, end: 201203

REACTIONS (6)
  - Injection site nodule [Unknown]
  - Diarrhoea haemorrhagic [Not Recovered/Not Resolved]
  - Injection site swelling [Not Recovered/Not Resolved]
  - Injection site swelling [Not Recovered/Not Resolved]
  - Drug ineffective [Not Recovered/Not Resolved]
  - Injection site reaction [Unknown]
